FAERS Safety Report 21066978 (Version 1)
Quarter: 2022Q3

REPORT INFORMATION
  Report Type: Spontaneous
  Country: FR (occurrence: None)
  Receive Date: 20220712
  Receipt Date: 20220712
  Transmission Date: 20221027
  Serious: Yes (Other)
  Sender: FDA-Public Use
  Company Number: None

PATIENT
  Age: 15 Year
  Sex: Male

DRUGS (2)
  1. SODIUM (CHLORURE DE) (SOLUTION DE) A 0,9 POUR CENT [Concomitant]
     Dosage: NOT ADMINISTERED
  2. CHLORHEXIDINE GLUCONATE [Suspect]
     Active Substance: CHLORHEXIDINE GLUCONATE
     Indication: Wrong product administered
     Dosage: 1 SINGLE DOSE
     Route: 047
     Dates: start: 20220523

REACTIONS (4)
  - Wrong product administered [Recovered/Resolved]
  - Ocular discomfort [Recovering/Resolving]
  - Ocular hyperaemia [Recovering/Resolving]
  - Eye pain [Recovering/Resolving]

NARRATIVE: CASE EVENT DATE: 20220523
